FAERS Safety Report 8157578 (Version 3)
Quarter: 2013Q1

REPORT INFORMATION
  Report Type: Spontaneous
  Country: US (occurrence: US)
  Receive Date: 20110927
  Receipt Date: 20130213
  Transmission Date: 20140127
  Serious: Yes (Other)
  Sender: FDA-Public Use
  Company Number: US-ASTRAZENECA-2011SE12631

PATIENT
  Sex: Male

DRUGS (21)
  1. SEROQUEL [Suspect]
     Route: 048
     Dates: start: 20050111
  2. SEROQUEL [Suspect]
     Route: 048
     Dates: start: 20050214
  3. TOPROL XL [Concomitant]
     Dates: start: 20050205
  4. LIPITOR [Concomitant]
     Dates: start: 20041213
  5. CLONAZEPAM/KLONOPIN [Concomitant]
     Dosage: 0.5 MG TO 1 MG
     Dates: start: 20050111
  6. HYDROCHLOROTHIAZIDE/HCTZ [Concomitant]
     Dates: start: 20050208
  7. HYDROCHLOROTHIAZIDE/HCTZ [Concomitant]
     Dates: start: 20050826
  8. METHADOSE [Concomitant]
     Dates: start: 20041217
  9. GABAPENTIN [Concomitant]
     Dates: start: 20050208
  10. DOXEPIN [Concomitant]
     Dates: start: 20050826
  11. HYDROCODONE/APAP [Concomitant]
     Dosage: 10/500
     Dates: start: 20041217
  12. CYMBALTA [Concomitant]
     Dates: start: 20050912
  13. SONATA [Concomitant]
     Dates: start: 20050912
  14. PROVIGIL [Concomitant]
     Dates: start: 20050111
  15. VIAGRA [Concomitant]
     Dates: start: 20050111
  16. GABITRIL [Concomitant]
     Dates: start: 20050111
  17. CYCLOBENZAPRINE [Concomitant]
     Dates: start: 20050130
  18. METHYLPREDNISOLONE [Concomitant]
     Dates: start: 20050130
  19. OXYCODONE [Concomitant]
     Dates: start: 20061031
  20. LISINOPRIL [Concomitant]
     Dates: start: 20061116
  21. ASPIRIN [Concomitant]
     Dates: start: 20061116

REACTIONS (3)
  - Pancreatitis [Unknown]
  - Diabetic coma [Unknown]
  - Type 2 diabetes mellitus [Unknown]
